FAERS Safety Report 12639665 (Version 1)
Quarter: 2016Q3

REPORT INFORMATION
  Report Type: Spontaneous
  Country: US (occurrence: None)
  Receive Date: 20160809
  Receipt Date: 20160809
  Transmission Date: 20161109
  Serious: Yes (Other)
  Sender: FDA-Public Use
  Company Number: None

PATIENT
  Age: 43 Year
  Sex: Female
  Weight: 56.7 kg

DRUGS (4)
  1. AZZERETTE [Concomitant]
  2. VYVASE [Concomitant]
  3. SUMATRIPTAN TABLETS, USP 50MG, 50 MG DR. REDDY^S LABORATORY LIMITED, BAC [Suspect]
     Active Substance: SUMATRIPTAN
     Indication: MIGRAINE
     Route: 048
     Dates: start: 20160609, end: 20160801
  4. WELLBUTRIN [Concomitant]
     Active Substance: BUPROPION HYDROCHLORIDE

REACTIONS (3)
  - Product substitution issue [None]
  - Drug ineffective [None]
  - Product counterfeit [None]

NARRATIVE: CASE EVENT DATE: 20160727
